FAERS Safety Report 9534163 (Version 2)
Quarter: 2013Q3

REPORT INFORMATION
  Report Type: Report from Study
  Country: DE (occurrence: DE)
  Receive Date: 20130918
  Receipt Date: 20130918
  Transmission Date: 20140515
  Serious: Yes (Death, Life-Threatening, Hospitalization, Other)
  Sender: FDA-Public Use
  Company Number: DE-ABBVIE-13P-062-1114897-00

PATIENT
  Age: 69 Year
  Sex: Male
  Weight: 83 kg

DRUGS (5)
  1. HUMIRA [Suspect]
     Indication: PSORIATIC ARTHROPATHY
     Route: 058
     Dates: start: 20060306, end: 20130604
  2. HUMIRA [Suspect]
     Indication: PSORIASIS
  3. HUMIRA [Suspect]
     Indication: CROHN^S DISEASE
  4. ASS [Concomitant]
     Indication: PRODUCT USED FOR UNKNOWN INDICATION
     Dosage: NOT REPORTED
     Route: 048
  5. BLOOD PRESSURE MEDICATION [Concomitant]
     Indication: PRODUCT USED FOR UNKNOWN INDICATION

REACTIONS (23)
  - Hepatic failure [Fatal]
  - General physical health deterioration [Not Recovered/Not Resolved]
  - Pyrexia [Not Recovered/Not Resolved]
  - Blood disorder [Unknown]
  - Lymphadenopathy [Not Recovered/Not Resolved]
  - Jaundice cholestatic [Not Recovered/Not Resolved]
  - Meningitis [Not Recovered/Not Resolved]
  - Multi-organ failure [Not Recovered/Not Resolved]
  - Blood glucose increased [Unknown]
  - Inflammatory marker increased [Unknown]
  - Ischaemic cerebral infarction [Unknown]
  - Cystitis [Unknown]
  - Respiratory tract infection [Not Recovered/Not Resolved]
  - Aortic stenosis [Unknown]
  - Intestinal perforation [Unknown]
  - Multi-organ failure [Unknown]
  - Decreased appetite [Unknown]
  - Hyperhidrosis [Unknown]
  - Weight decreased [Unknown]
  - Tachycardia [Unknown]
  - Cerebral infarction [Unknown]
  - Lymphoma [Fatal]
  - Chloroma [Fatal]
